FAERS Safety Report 8189872 (Version 8)
Quarter: 2013Q2

REPORT INFORMATION
  Report Type: Report from Study
  Country: BR (occurrence: BR)
  Receive Date: 20111019
  Receipt Date: 20130603
  Transmission Date: 20140414
  Serious: Yes (Life-Threatening, Hospitalization)
  Sender: FDA-Public Use
  Company Number: PHHO2011BR09808

PATIENT
  Age: 42 Year
  Sex: Male
  Weight: 89 kg

DRUGS (12)
  1. LCZ696 [Suspect]
     Indication: CARDIAC FAILURE CHRONIC
     Dosage: 200 MG, BID
     Route: 048
     Dates: start: 20110104, end: 20110603
  2. ALLOPURINOL [Suspect]
     Indication: HYPERURICAEMIA
     Dosage: UNK
     Route: 048
     Dates: start: 20091118, end: 20110406
  3. CARVEDILOL [Concomitant]
     Indication: CARDIAC FAILURE
     Dosage: 37.5 12/12 HR
     Route: 048
     Dates: start: 20090411, end: 20110406
  4. HYDRALAZINE [Concomitant]
     Indication: CARDIAC FAILURE
     Dosage: 25, 8/8 HR
     Route: 048
     Dates: start: 20101011, end: 20110604
  5. ISOSORBIDE DINITRATE [Concomitant]
     Indication: CARDIAC FAILURE
     Dosage: UNK
     Route: 048
     Dates: start: 20101011, end: 20110406
  6. FUROSEMIDE [Concomitant]
     Indication: CARDIAC FAILURE
     Dosage: UNK
     Route: 048
     Dates: start: 20090411, end: 20110406
  7. OMEPRAZOL [Concomitant]
     Indication: ABDOMINAL PAIN UPPER
     Dosage: UNK
     Route: 048
     Dates: start: 20100727
  8. AMIODARONE [Concomitant]
     Indication: ARRHYTHMIA
     Dosage: UNK
     Route: 048
     Dates: start: 20090411, end: 20110406
  9. ESPIRONOLACTONE [Concomitant]
     Indication: CARDIAC FAILURE
     Dosage: UNK
     Route: 048
     Dates: start: 20090411, end: 20110406
  10. THIAZIDE DERIVATIVES [Concomitant]
  11. ACE INHIBITORS [Concomitant]
  12. ISORDIL [Concomitant]

REACTIONS (5)
  - Hepatotoxicity [Recovered/Resolved]
  - Atrial fibrillation [Not Recovered/Not Resolved]
  - Acute hepatic failure [Recovered/Resolved]
  - Renal failure acute [Recovered/Resolved]
  - Cardiac failure acute [Recovered/Resolved]
